FAERS Safety Report 22153350 (Version 2)
Quarter: 2023Q1

REPORT INFORMATION
  Report Type: Report from Study
  Country: KR (occurrence: KR)
  Receive Date: 20230329
  Receipt Date: 20230330
  Transmission Date: 20230418
  Serious: Yes (Other)
  Sender: FDA-Public Use
  Company Number: KR-ABBVIE-4707965

PATIENT
  Age: 76 Year
  Sex: Male
  Weight: 59 kg

DRUGS (9)
  1. RINVOQ [Suspect]
     Active Substance: UPADACITINIB
     Indication: Dermatitis atopic
     Dosage: FORM STRENGTH: 15 MG
     Route: 048
     Dates: start: 20220818, end: 20220914
  2. ACITRETINE CF [Concomitant]
     Indication: Dermatitis atopic
     Dates: start: 20211112, end: 20220818
  3. Trizine [Concomitant]
     Indication: Hypertension
     Route: 048
  4. HYUNDAI TIBOLONE [Concomitant]
     Indication: Hypertension
     Route: 048
  5. MYUNGMOON ASPIRIN [Concomitant]
     Indication: Hypertension
     Route: 060
  6. NEO-ANTIHISTAMINE [Concomitant]
     Indication: Dermatitis atopic
     Dates: start: 20160802
  7. MAXICORTEX [Concomitant]
     Indication: Dermatitis atopic
     Dates: start: 20120125
  8. AMLODIPINE CAMSYLATE [Concomitant]
     Active Substance: AMLODIPINE CAMSYLATE
     Indication: Hypertension
     Route: 048
  9. ASPIRIN [Concomitant]
     Active Substance: ASPIRIN
     Indication: Hypertension
     Route: 048

REACTIONS (1)
  - Interferon gamma release assay positive [Not Recovered/Not Resolved]

NARRATIVE: CASE EVENT DATE: 20220915
